FAERS Safety Report 23452398 (Version 2)
Quarter: 2024Q1

REPORT INFORMATION
  Report Type: Report from Study
  Country: MX (occurrence: MX)
  Receive Date: 20240129
  Receipt Date: 20240301
  Transmission Date: 20240410
  Serious: Yes (Hospitalization, Other)
  Sender: FDA-Public Use
  Company Number: MX-AstraZeneca-2024A018746

PATIENT
  Age: 3 Month
  Sex: Female
  Weight: 5.9 kg

DRUGS (4)
  1. SYNAGIS [Suspect]
     Active Substance: PALIVIZUMAB
     Indication: Antiviral prophylaxis
     Dosage: MONTHLY?PALIVIZUMAB: 100.0MG/ML
     Route: 030
  2. SYNAGIS [Suspect]
     Active Substance: PALIVIZUMAB
     Dosage: MONTHLY?PALIVIZUMAB: 100.0MG/ML
     Route: 030
  3. SYNAGIS [Suspect]
     Active Substance: PALIVIZUMAB
     Dosage: MONTHLY?PALIVIZUMAB: 100.0MG/ML
     Route: 030
     Dates: start: 20240117, end: 20240117
  4. SYNAGIS [Suspect]
     Active Substance: PALIVIZUMAB
     Dosage: MONTHLY
     Route: 030
     Dates: start: 20240221, end: 20240221

REACTIONS (14)
  - Abdominal pain [Recovered/Resolved]
  - Anaemia [Unknown]
  - Crying [Recovered/Resolved]
  - Irritability [Recovered/Resolved]
  - Restlessness [Recovered/Resolved]
  - Cough [Not Recovered/Not Resolved]
  - Muscle spasms [Recovered/Resolved]
  - Pharyngitis [Unknown]
  - Eating disorder [Recovered/Resolved]
  - Oropharyngeal pain [Recovered/Resolved]
  - Throat irritation [Not Recovered/Not Resolved]
  - Pain [Recovered/Resolved]
  - Irritability [Recovered/Resolved]
  - Boredom [Recovered/Resolved]

NARRATIVE: CASE EVENT DATE: 20231101
